FAERS Safety Report 8164499-X (Version None)
Quarter: 2012Q1

REPORT INFORMATION
  Report Type: 
  Country: None (occurrence: None)
  Receive Date: 20120224
  Receipt Date: 20120220
  Transmission Date: 20120608
  Serious: Yes (Death)
  Sender: FDA-Public Use
  Company Number: FR-ASTRAZENECA-2011SE78062

PATIENT
  Age: 48 Year
  Sex: Female
  Weight: 70 kg

DRUGS (8)
  1. ZOLPIDEM [Concomitant]
     Route: 048
  2. QUETIAPINE FUMARATE [Suspect]
     Indication: BIPOLAR DISORDER
     Route: 048
     Dates: start: 20111115
  3. LAMICTAL [Concomitant]
     Route: 048
     Dates: start: 20111011
  4. LOXAPINE HCL [Concomitant]
     Dosage: 100 TO 200 MG PER DAY
     Route: 048
     Dates: start: 20090101
  5. ATHYMIL [Concomitant]
     Route: 048
  6. CLONAZEPAM [Concomitant]
     Route: 048
     Dates: start: 20110715
  7. DEPAKOTE [Concomitant]
     Route: 048
     Dates: start: 20110715
  8. TRIMEPRAZINE TARTRATE [Concomitant]
     Route: 048

REACTIONS (1)
  - COMPLETED SUICIDE [None]
